FAERS Safety Report 6214388-2 (Version None)
Quarter: 2009Q2

REPORT INFORMATION
  Report Type: 
  Country: None (occurrence: None)
  Receive Date: 20090604
  Receipt Date: 20090527
  Transmission Date: 20091009
  Serious: Yes (Other)
  Sender: FDA-Public Use
  Company Number: US-AMGEN-US339152

PATIENT
  Sex: Female
  Weight: 94.4 kg

DRUGS (6)
  1. NPLATE [Suspect]
     Indication: IDIOPATHIC THROMBOCYTOPENIC PURPURA
     Route: 058
     Dates: start: 20081030, end: 20090106
  2. ZOCOR [Concomitant]
     Route: 048
  3. LOPRESSOR [Concomitant]
     Route: 048
  4. OSCAL [Concomitant]
     Route: 048
  5. PREVACID [Concomitant]
     Route: 048
  6. MULTI-VITAMINS [Concomitant]
     Route: 048

REACTIONS (2)
  - DRUG INEFFECTIVE [None]
  - THROMBOCYTOPENIA [None]
